FAERS Safety Report 4343843-5 (Version None)
Quarter: 2004Q2

REPORT INFORMATION
  Report Type: 
  Country: None (occurrence: None)
  Receive Date: 20040419
  Receipt Date: 20040409
  Transmission Date: 20050107
  Serious: Yes (Hospitalization)
  Sender: FDA-Public Use
  Company Number: 2004-02-1063

PATIENT
  Age: 74 Year
  Sex: Female

DRUGS (4)
  1. LORATADINE [Suspect]
     Indication: DRUG USE FOR UNKNOWN INDICATION
     Dosage: 10 MG QD ORAL
     Route: 048
     Dates: start: 20031119
  2. CITALOPRAM HYDROBROMIDE [Suspect]
     Indication: DRUG USE FOR UNKNOWN INDICATION
     Dosage: 20 MG QD ORAL
     Route: 048
  3. CROMOLYN SODIUM [Concomitant]
  4. DIGITOXINE [Concomitant]

REACTIONS (6)
  - BRADYPHRENIA [None]
  - CONFUSIONAL STATE [None]
  - DRUG INTERACTION [None]
  - FALL [None]
  - MALAISE [None]
  - SOMNOLENCE [None]
